FAERS Safety Report 13909962 (Version 12)
Quarter: 2019Q1

REPORT INFORMATION
  Report Type: Report from Study
  Country: ES (occurrence: ES)
  Receive Date: 20170828
  Receipt Date: 20190228
  Transmission Date: 20190417
  Serious: Yes (Death, Hospitalization)
  Sender: FDA-Public Use
  Company Number: ES-ROCHE-1969972

PATIENT
  Age: 74 Year
  Sex: Male
  Weight: 105 kg

DRUGS (30)
  1. OXALIPLATIN. [Suspect]
     Active Substance: OXALIPLATIN
     Indication: COLORECTAL CANCER METASTATIC
     Dosage: MOST RECENT DOSE RECEIVED ON 13/JUL/2017 AT 17.30 PRIOR TO SAE (183.6 MG)
     Route: 042
     Dates: start: 20170629
  2. GRANISETRON [Concomitant]
     Active Substance: GRANISETRON
     Indication: PROPHYLACTIC CHEMOTHERAPY
     Route: 065
     Dates: start: 20170629, end: 20170713
  3. MEROPENEM. [Concomitant]
     Active Substance: MEROPENEM
     Indication: KLEBSIELLA INFECTION
     Route: 065
     Dates: start: 20170808, end: 20170812
  4. PARACETAMOL [Concomitant]
     Active Substance: ACETAMINOPHEN
     Indication: PAIN PROPHYLAXIS
     Route: 065
     Dates: start: 20170801, end: 20170812
  5. BUSCAPINE [Concomitant]
     Active Substance: BUTYLSCOPOLAMINE
     Indication: DIARRHOEA
     Route: 065
     Dates: start: 20170725, end: 20170805
  6. TAMSULOSINE [Concomitant]
     Active Substance: TAMSULOSIN HYDROCHLORIDE
     Route: 065
     Dates: start: 20170729, end: 20170731
  7. ENOXAPARIN [Concomitant]
     Active Substance: ENOXAPARIN
     Indication: THROMBOSIS PROPHYLAXIS
     Route: 065
     Dates: start: 20170805, end: 20170805
  8. DAPTOMICINA [Concomitant]
     Active Substance: DAPTOMYCIN
     Indication: KLEBSIELLA INFECTION
     Route: 065
     Dates: start: 20170810, end: 20170812
  9. PIPERACILLINE [Concomitant]
     Active Substance: PIPERACILLIN SODIUM
     Indication: KLEBSIELLA INFECTION
     Route: 065
     Dates: start: 20170807, end: 20170808
  10. BEVACIZUMAB. [Suspect]
     Active Substance: BEVACIZUMAB
     Indication: COLORECTAL CANCER METASTATIC
     Dosage: INITIAL DOSE 15-30 MINUTE DAY1 (AS PER PROTOCOL)?MOST RECENT DOSE 525 MG RECEIVED ON 13/JUL/2017 AT
     Route: 042
     Dates: start: 20170629
  11. FOLINIC ACID [Suspect]
     Active Substance: LEUCOVORIN
     Indication: COLORECTAL CANCER METASTATIC
     Dosage: MOST RECENT DOSE RECEIVED ON 13/JUL/2017 AT 17.30 PRIOR TO SAE (432 MG)?DOSE RECEIVED ON 14/JUL/2017
     Route: 042
     Dates: start: 20170629
  12. OCTREOTIDE. [Concomitant]
     Active Substance: OCTREOTIDE
     Indication: DIARRHOEA
     Route: 065
     Dates: start: 20170725, end: 20170731
  13. DEXAMETHASONE. [Concomitant]
     Active Substance: DEXAMETHASONE
     Indication: PROPHYLACTIC CHEMOTHERAPY
     Route: 065
     Dates: start: 20170629, end: 20170725
  14. DEXAMETHASONE. [Concomitant]
     Active Substance: DEXAMETHASONE
     Route: 065
     Dates: end: 20170713
  15. LOPERAMIDE [Concomitant]
     Active Substance: LOPERAMIDE
     Indication: DIARRHOEA
     Route: 065
     Dates: start: 20170706, end: 20170706
  16. CIPROFLOXACIN. [Concomitant]
     Active Substance: CIPROFLOXACIN
     Indication: DIARRHOEA
     Route: 065
     Dates: start: 20170725, end: 20170808
  17. ALBUMIN [Concomitant]
     Active Substance: ALBUMIN HUMAN
     Indication: HYPOPROTEINAEMIA
     Route: 065
     Dates: start: 20170729, end: 20170811
  18. INSULINE [Concomitant]
     Active Substance: INSULIN NOS
     Route: 065
     Dates: start: 20170807, end: 20170812
  19. BEMIPARIN [Concomitant]
     Active Substance: BEMIPARIN
     Route: 065
     Dates: start: 20170807, end: 20170812
  20. LORAZEPAM. [Concomitant]
     Active Substance: LORAZEPAM
     Indication: PROPHYLAXIS
     Route: 065
     Dates: start: 20170725, end: 20170805
  21. FENTANIL [Concomitant]
     Active Substance: FENTANYL
     Indication: MYALGIA
     Route: 065
     Dates: start: 20170725, end: 20170731
  22. VANCOMYCINE [Concomitant]
     Active Substance: VANCOMYCIN
     Indication: KLEBSIELLA INFECTION
     Route: 065
     Dates: start: 20170811, end: 20170812
  23. TAZOBACTAM [Concomitant]
     Active Substance: TAZOBACTAM
     Indication: KLEBSIELLA INFECTION
     Route: 065
     Dates: start: 20170807, end: 20170808
  24. BEMIPARIN [Concomitant]
     Active Substance: BEMIPARIN
     Indication: THROMBOSIS PROPHYLAXIS
     Dosage: 3500 U (UNIT)
     Route: 065
     Dates: start: 20170725, end: 20170804
  25. 5-FLUOROURACIL [Suspect]
     Active Substance: FLUOROURACIL
     Indication: COLORECTAL CANCER METASTATIC
     Dosage: FOR 46-HOUR IV ON DAY 1 (DOSE AS PER PROTOCOL)?MOST RECENT DOSE RECEIVED ON 13/JUL/2017 AT 17.30 PRI
     Route: 042
     Dates: start: 20170629
  26. NYSTATIN. [Concomitant]
     Active Substance: NYSTATIN
     Indication: PROPHYLAXIS
     Route: 065
     Dates: start: 20170629, end: 20170731
  27. OMEPRAZOLE. [Concomitant]
     Active Substance: OMEPRAZOLE
     Indication: GASTROINTESTINAL DISORDER PROPHYLAXIS
     Route: 065
     Dates: start: 20170725, end: 20170802
  28. OMEPRAZOLE. [Concomitant]
     Active Substance: OMEPRAZOLE
     Route: 065
     Dates: start: 20170809, end: 20170812
  29. METOCLOPRAMIDE. [Concomitant]
     Active Substance: METOCLOPRAMIDE
     Indication: PROPHYLAXIS OF NAUSEA AND VOMITING
     Route: 065
     Dates: start: 20170725, end: 20170812
  30. METAMIZOL [Concomitant]
     Active Substance: METAMIZOLE SODIUM
     Indication: MYALGIA
     Route: 065
     Dates: start: 20170725, end: 20170812

REACTIONS (2)
  - Multiple organ dysfunction syndrome [Fatal]
  - Acute kidney injury [Not Recovered/Not Resolved]

NARRATIVE: CASE EVENT DATE: 20170725
